FAERS Safety Report 16785413 (Version 5)
Quarter: 2023Q4

REPORT INFORMATION
  Report Type: Other
  Country: AT (occurrence: AT)
  Receive Date: 20190909
  Receipt Date: 20231129
  Transmission Date: 20240109
  Serious: Yes (Hospitalization)
  Sender: FDA-Public Use
  Company Number: AT-SZ09-PHHY2018AT117140

PATIENT
  Age: 39 Year
  Sex: Female

DRUGS (23)
  1. ENFUVIRTIDE [Suspect]
     Active Substance: ENFUVIRTIDE
     Indication: HIV infection
     Dosage: UNK
     Route: 048
  2. ZIDOVUDINE [Suspect]
     Active Substance: ZIDOVUDINE
     Indication: Antiretroviral therapy
     Dosage: 4TH THERAPY
     Route: 065
  3. ZIDOVUDINE [Suspect]
     Active Substance: ZIDOVUDINE
     Dosage: 5TH THERAPY
     Route: 065
  4. INDINAVIR [Suspect]
     Active Substance: INDINAVIR
     Indication: Antiretroviral therapy
     Route: 065
  5. EFAVIRENZ [Suspect]
     Active Substance: EFAVIRENZ
     Indication: Antiretroviral therapy
     Dosage: 3RD THERAPY
     Route: 065
  6. EFAVIRENZ [Suspect]
     Active Substance: EFAVIRENZ
     Dosage: 4TH THERAPY
     Route: 065
  7. LAMIVUDINE [Suspect]
     Active Substance: LAMIVUDINE
     Indication: Antiretroviral therapy
     Dosage: 1ST THERAPY
     Route: 065
  8. LAMIVUDINE [Suspect]
     Active Substance: LAMIVUDINE
     Dosage: 5TH THERAPY
     Route: 065
  9. LAMIVUDINE [Suspect]
     Active Substance: LAMIVUDINE
     Dosage: 4TH THERAPY
     Route: 065
  10. LAMIVUDINE [Suspect]
     Active Substance: LAMIVUDINE
     Dosage: 2ND THERAPY
     Route: 065
  11. ISENTRESS [Suspect]
     Active Substance: RALTEGRAVIR POTASSIUM
     Indication: HIV infection
     Dosage: 800 MG, QD
     Route: 048
  12. STAVUDINE [Suspect]
     Active Substance: STAVUDINE
     Indication: Antiretroviral therapy
     Dosage: 3RD THERAPY
     Route: 065
  13. STAVUDINE [Suspect]
     Active Substance: STAVUDINE
     Dosage: 2ND THERAPY
     Route: 065
  14. DIDANOSINE [Suspect]
     Active Substance: DIDANOSINE
     Indication: Antiretroviral therapy
     Route: 065
  15. LAMIVUDINE\ZIDOVUDINE [Suspect]
     Active Substance: LAMIVUDINE\ZIDOVUDINE
     Indication: HIV infection
     Dosage: UNK
     Route: 048
  16. LAMIVUDINE\ZIDOVUDINE [Suspect]
     Active Substance: LAMIVUDINE\ZIDOVUDINE
     Indication: Antiretroviral therapy
  17. LOPINAVIR\RITONAVIR [Suspect]
     Active Substance: LOPINAVIR\RITONAVIR
     Indication: HIV infection
     Dosage: UNK
     Route: 048
  18. RETROVIR [Suspect]
     Active Substance: ZIDOVUDINE
     Indication: Prophylaxis
     Dosage: UNK
     Route: 048
  19. RETROVIR [Suspect]
     Active Substance: ZIDOVUDINE
     Indication: Antiretroviral therapy
  20. PREZISTA [Concomitant]
     Active Substance: DARUNAVIR ETHANOLATE
     Indication: Product used for unknown indication
     Dosage: 1200 MG, QD
     Route: 048
  21. FUZEON [Concomitant]
     Active Substance: ENFUVIRTIDE
     Indication: Product used for unknown indication
     Dosage: UNK
     Route: 065
  22. FUZEON [Concomitant]
     Active Substance: ENFUVIRTIDE
     Dosage: UNK
     Route: 065
  23. PENICILLIN V POTASSIUM [Concomitant]
     Active Substance: PENICILLIN V POTASSIUM
     Indication: HIV infection
     Dosage: UNK?DRUG REPORTED AS LPV
     Route: 048

REACTIONS (5)
  - Acute stress disorder [Unknown]
  - Premature rupture of membranes [Unknown]
  - Rebound effect [Unknown]
  - Viral load increased [Unknown]
  - Maternal exposure during pregnancy [Unknown]
